FAERS Safety Report 8607688-X (Version None)
Quarter: 2012Q3

REPORT INFORMATION
  Report Type: 
  Country: None (occurrence: None)
  Receive Date: 20120821
  Receipt Date: 20120816
  Transmission Date: 20120928
  Serious: Yes (Other)
  Sender: FDA-Public Use
  Company Number: GB-PFIZER INC-2012200491

PATIENT
  Age: 39 Year
  Sex: Male
  Weight: 89 kg

DRUGS (6)
  1. RAMIPRIL [Concomitant]
     Dates: start: 20120518
  2. ASPIRIN [Concomitant]
     Dates: start: 20120518
  3. ATORVASTATIN [Suspect]
     Dosage: UNK
     Dates: start: 20120518
  4. ZYPREXA [Concomitant]
     Dates: start: 20120420
  5. BISOPROLOL [Concomitant]
     Dates: start: 20120426, end: 20120508
  6. LANSOPRAZOLE [Concomitant]
     Dates: start: 20120518

REACTIONS (2)
  - HYPOAESTHESIA [None]
  - PARAESTHESIA [None]
